FAERS Safety Report 26166279 (Version 1)
Quarter: 2025Q4

REPORT INFORMATION
  Report Type: Spontaneous
  Country: US (occurrence: US)
  Receive Date: 20251216
  Receipt Date: 20251216
  Transmission Date: 20260118
  Serious: No
  Sender: STRIDES
  Company Number: US-STRIDES ARCOLAB LIMITED-2025SP014412

PATIENT
  Sex: Female

DRUGS (4)
  1. GABAPENTIN [Suspect]
     Active Substance: GABAPENTIN
     Indication: Meralgia paraesthetica
     Dosage: UNK
     Route: 065
  2. OXYCODONE [Suspect]
     Active Substance: OXYCODONE
     Indication: Meralgia paraesthetica
     Dosage: UNK
     Route: 065
  3. LIDOCAINE [Suspect]
     Active Substance: LIDOCAINE
     Indication: Meralgia paraesthetica
     Dosage: 5% PATCH
     Route: 065
  4. CAPSAICIN [Suspect]
     Active Substance: CAPSAICIN
     Indication: Meralgia paraesthetica
     Dosage: 0.1% PATCH
     Route: 065

REACTIONS (2)
  - Therapy partial responder [Unknown]
  - Off label use [Unknown]
